FAERS Safety Report 10266847 (Version 1)
Quarter: 2014Q2

REPORT INFORMATION
  Report Type: Spontaneous
  Country: US (occurrence: US)
  Receive Date: 20140630
  Receipt Date: 20140630
  Transmission Date: 20141212
  Serious: Yes (Hospitalization)
  Sender: FDA-Public Use
  Company Number: 2014SP003447

PATIENT
  Age: 61 Year
  Sex: Female

DRUGS (24)
  1. OXALIPLATIN [Suspect]
     Indication: PANCREATIC CARCINOMA
     Route: 042
     Dates: start: 20140206, end: 20140220
  2. OXALIPLATIN [Suspect]
     Indication: PANCREATIC CARCINOMA
     Route: 042
     Dates: start: 20140220, end: 20140313
  3. OXALIPLATIN [Suspect]
     Indication: PANCREATIC CARCINOMA
     Route: 042
     Dates: start: 20140313, end: 20140327
  4. OXALIPLATIN [Suspect]
     Indication: PANCREATIC CARCINOMA
     Route: 042
     Dates: start: 20140327, end: 20140410
  5. OXALIPLATIN [Suspect]
     Indication: PANCREATIC CARCINOMA
     Route: 042
     Dates: start: 20140410, end: 20140424
  6. OXALIPLATIN [Suspect]
     Indication: PANCREATIC CARCINOMA
     Route: 042
     Dates: start: 20140424
  7. IRINOTECAN [Suspect]
     Indication: PANCREATIC CARCINOMA
     Route: 042
     Dates: start: 20140206, end: 20140220
  8. IRINOTECAN [Suspect]
     Indication: PANCREATIC CARCINOMA
     Route: 042
     Dates: start: 20140220, end: 20140313
  9. IRINOTECAN [Suspect]
     Indication: PANCREATIC CARCINOMA
     Route: 042
     Dates: start: 20140313, end: 20140327
  10. IRINOTECAN [Suspect]
     Indication: PANCREATIC CARCINOMA
     Route: 042
     Dates: start: 20140327, end: 20140410
  11. IRINOTECAN [Suspect]
     Indication: PANCREATIC CARCINOMA
     Route: 042
     Dates: start: 20140410, end: 20140424
  12. IRINOTECAN [Suspect]
     Indication: PANCREATIC CARCINOMA
     Route: 042
     Dates: start: 20140424
  13. FLUOROURACIL [Suspect]
     Indication: PANCREATIC CARCINOMA
     Route: 040
     Dates: start: 20140206, end: 20140220
  14. FLUOROURACIL [Suspect]
     Indication: PANCREATIC CARCINOMA
     Dates: start: 20140206, end: 20140220
  15. FLUOROURACIL [Suspect]
     Indication: PANCREATIC CARCINOMA
     Route: 040
     Dates: start: 20140220, end: 20140313
  16. FLUOROURACIL [Suspect]
     Indication: PANCREATIC CARCINOMA
     Dates: start: 20140220, end: 20140313
  17. FLUOROURACIL [Suspect]
     Indication: PANCREATIC CARCINOMA
     Route: 040
     Dates: start: 20140313, end: 20140327
  18. FLUOROURACIL [Suspect]
     Indication: PANCREATIC CARCINOMA
     Dates: start: 20140313, end: 20140327
  19. FLUOROURACIL [Suspect]
     Indication: PANCREATIC CARCINOMA
     Route: 040
     Dates: start: 20140327, end: 20140410
  20. FLUOROURACIL [Suspect]
     Indication: PANCREATIC CARCINOMA
     Dates: start: 20140327, end: 20140410
  21. FLUOROURACIL [Suspect]
     Indication: PANCREATIC CARCINOMA
     Route: 040
     Dates: start: 20140410, end: 20140424
  22. FLUOROURACIL [Suspect]
     Indication: PANCREATIC CARCINOMA
     Dates: start: 20140410, end: 20140424
  23. FLUOROURACIL [Suspect]
     Indication: PANCREATIC CARCINOMA
     Route: 040
     Dates: start: 20140424
  24. FLUOROURACIL [Suspect]
     Indication: PANCREATIC CARCINOMA
     Dates: start: 20140424

REACTIONS (2)
  - Post procedural haemorrhage [Recovered/Resolved]
  - Haemoglobin decreased [Recovered/Resolved]
